FAERS Safety Report 4343482-6 (Version None)
Quarter: 2004Q2

REPORT INFORMATION
  Report Type: 
  Country: None (occurrence: None)
  Receive Date: 20040419
  Receipt Date: 20040401
  Transmission Date: 20050107
  Serious: Yes (Other)
  Sender: FDA-Public Use
  Company Number: A-US2004-05393

PATIENT
  Age: 78 Year
  Sex: Female

DRUGS (13)
  1. TRACLEER [Suspect]
     Indication: PULMONARY HYPERTENSION
     Dosage: SEE IMAGE
     Route: 048
     Dates: start: 20020601, end: 20020701
  2. TRACLEER [Suspect]
     Indication: PULMONARY HYPERTENSION
     Dosage: SEE IMAGE
     Route: 048
     Dates: start: 20020701, end: 20040211
  3. OXYGEN (OXYGEN) [Concomitant]
  4. PREVACID [Concomitant]
  5. DYNACIRC [Concomitant]
  6. LASIX [Concomitant]
  7. AMARYL [Concomitant]
  8. ACTOS [Concomitant]
  9. ASPIRIN [Concomitant]
  10. XOPENEX [Concomitant]
  11. TRIAVIL (AMITRIPTYLINE HYDROCHLORIDE, PERPHENAZINE) [Concomitant]
  12. ATROVENT [Concomitant]
  13. GAS-X (DIMETICONE, ACTIVATED) [Concomitant]

REACTIONS (3)
  - ALANINE AMINOTRANSFERASE INCREASED [None]
  - ASPARTATE AMINOTRANSFERASE INCREASED [None]
  - BLOOD ALKALINE PHOSPHATASE INCREASED [None]
